FAERS Safety Report 10442641 (Version 1)
Quarter: 2014Q3

REPORT INFORMATION
  Report Type: Spontaneous
  Country: BR (occurrence: None)
  Receive Date: 20140908
  Receipt Date: 20140908
  Transmission Date: 20150326
  Serious: Yes (Hospitalization)
  Sender: FDA-Public Use
  Company Number: 7318020

PATIENT
  Age: 48 Year
  Sex: Female

DRUGS (1)
  1. EUTHYROX (LEVOTHYROXINE SODIUM)(TABLET)(LEVOTHYROXINE SODIUM) [Suspect]
     Active Substance: LEVOTHYROXINE SODIUM
     Indication: HYPOTHYROIDISM
     Dosage: 1 IN 1 D
     Dates: start: 2002

REACTIONS (6)
  - Discomfort [None]
  - Tachycardia [None]
  - Alopecia [None]
  - Malaise [None]
  - Atrial fibrillation [None]
  - Feeling abnormal [None]

NARRATIVE: CASE EVENT DATE: 20131102
